FAERS Safety Report 8035856-7 (Version None)
Quarter: 2012Q1

REPORT INFORMATION
  Report Type: 
  Country: None (occurrence: None)
  Receive Date: 20120105
  Receipt Date: 20111221
  Transmission Date: 20120608
  Serious: Yes (Hospitalization)
  Sender: FDA-Public Use
  Company Number: 7102881

PATIENT
  Age: 1 Day
  Sex: Male

DRUGS (10)
  1. LEVOTHYROXINE SODIUM [Suspect]
     Indication: FOETAL EXPOSURE TIMING UNSPECIFIED
     Route: 064
  2. TRAMADOL HYDROCHLORIDE [Suspect]
     Indication: PAIN IN EXTREMITY
     Dosage: 400 MG (100 MG, 4 IN 1 D) 200 MG (100 MG, 2 IN 1 D)
  3. LAMICTAL [Suspect]
     Indication: FOETAL EXPOSURE TIMING UNSPECIFIED
     Dosage: 2 DF (1 DF, 1-0-1)
     Route: 064
  4. NEURONTIN [Suspect]
     Indication: EPILEPSY
     Dosage: 3 DF (1 DF, (1-1-1))
  5. TRAMADOL HYDROCHLORIDE [Suspect]
     Indication: FOETAL EXPOSURE TIMING UNSPECIFIED
     Dosage: 400 MG (100 MG, 4 IN 1 D) 200 MG (100 MG, 2 IN 1 D)
     Route: 064
  6. LEVOTHYROXINE SODIUM [Suspect]
     Indication: PRODUCT USED FOR UNKNOWN INDICATION
     Route: 048
  7. URBANYL (CLOBAZAM) (5) (CLOBAZAM) [Suspect]
     Indication: FOETAL EXPOSURE TIMING UNSPECIFIED
     Dosage: 2 DF (1 DF, 1-0-1)
     Route: 064
  8. LAMICTAL [Suspect]
     Indication: EPILEPSY
     Dosage: 2 DF (1 DF, 1-0-1)
  9. URBANYL (CLOBAZAM) (5) (CLOBAZAM) [Suspect]
     Indication: EPILEPSY
     Dosage: 2 DF (1 DF, 1-0-1)
  10. NEURONTIN [Suspect]
     Indication: FOETAL EXPOSURE TIMING UNSPECIFIED
     Dosage: 3 DF (1 DF, (1-1-1))
     Route: 064

REACTIONS (2)
  - PREMATURE BABY [None]
  - FOETAL EXPOSURE DURING PREGNANCY [None]
